FAERS Safety Report 18816951 (Version 2)
Quarter: 2022Q3

REPORT INFORMATION
  Report Type: Spontaneous
  Country: CA (occurrence: CA)
  Receive Date: 20210201
  Receipt Date: 20220712
  Transmission Date: 20221027
  Serious: Yes (Hospitalization, Other)
  Sender: FDA-Public Use
  Company Number: CA-GLAXOSMITHKLINE-CA2021GSK022013

PATIENT

DRUGS (1)
  1. AVANDIA [Suspect]
     Active Substance: ROSIGLITAZONE MALEATE
     Indication: Diabetes mellitus
     Dosage: 8 MG, QD
     Route: 048
     Dates: start: 20060828, end: 20100917

REACTIONS (8)
  - Ischaemic mitral regurgitation [Unknown]
  - Coronary artery disease [Unknown]
  - Cardiac failure congestive [Unknown]
  - Ischaemic cardiomyopathy [Unknown]
  - Coronary artery bypass [Unknown]
  - Cardiac failure [Unknown]
  - Cardiac disorder [Unknown]
  - Cardiac failure chronic [Unknown]
